FAERS Safety Report 4946484-1 (Version None)
Quarter: 2006Q1

REPORT INFORMATION
  Report Type: 
  Country: None (occurrence: None)
  Receive Date: 20060313
  Receipt Date: 20060301
  Transmission Date: 20060701
  Serious: Yes (Hospitalization, Other)
  Sender: FDA-Public Use
  Company Number: 2006032840

PATIENT
  Age: 40 Year
  Sex: Female

DRUGS (4)
  1. ZOLOFT [Suspect]
     Indication: ANXIETY
     Dosage: 100 MG (50 MG)
  2. ZOLOFT [Suspect]
     Indication: DEPRESSION
     Dosage: 100 MG (50 MG)
  3. DEPO-PROVERA [Suspect]
     Indication: HAEMORRHAGE
     Dates: start: 20041201, end: 20060101
  4. OXYCODONE (OXYCODONE) [Concomitant]

REACTIONS (9)
  - LIP AND/OR ORAL CAVITY CANCER [None]
  - MENORRHAGIA [None]
  - MENTAL DISORDER [None]
  - METASTASES TO LYMPH NODES [None]
  - TONGUE NEOPLASM MALIGNANT STAGE UNSPECIFIED [None]
  - TREMOR [None]
  - UTERINE CYST [None]
  - UTERINE LEIOMYOMA [None]
  - WEIGHT DECREASED [None]
